FAERS Safety Report 14283572 (Version 1)
Quarter: 2017Q4

REPORT INFORMATION
  Report Type: Spontaneous
  Country: PT (occurrence: PT)
  Receive Date: 20171214
  Receipt Date: 20171214
  Transmission Date: 20180321
  Serious: Yes (Death)
  Sender: FDA-Public Use
  Company Number: PT-ACCORD-062075

PATIENT
  Age: 32 Year
  Sex: Male

DRUGS (8)
  1. BROMAZEPAM [Suspect]
     Active Substance: BROMAZEPAM
     Dosage: PILLS
  2. PAROXETINE. [Suspect]
     Active Substance: PAROXETINE
     Dosage: PILLS
  3. HALOPERIDOL. [Suspect]
     Active Substance: HALOPERIDOL
     Dosage: PILLS
  4. LORAZEPAM. [Suspect]
     Active Substance: LORAZEPAM
     Dosage: PILLS
  5. QUETIAPINE. [Suspect]
     Active Substance: QUETIAPINE
     Dosage: PILLS
  6. OLANZAPINE. [Suspect]
     Active Substance: OLANZAPINE
     Dosage: PILLS
  7. RISPERIDONE. [Concomitant]
     Active Substance: RISPERIDONE
  8. FLUOXETINE [Suspect]
     Active Substance: FLUOXETINE HYDROCHLORIDE
     Dosage: PILLS

REACTIONS (4)
  - Acute pulmonary oedema [Fatal]
  - Completed suicide [Fatal]
  - Intentional overdose [Fatal]
  - Toxicity to various agents [Fatal]
